FAERS Safety Report 16003256 (Version 2)
Quarter: 2019Q2

REPORT INFORMATION
  Report Type: Report from Study
  Country: None (occurrence: US)
  Receive Date: 20190225
  Receipt Date: 20190527
  Transmission Date: 20190711
  Serious: Yes (Other)
  Sender: FDA-Public Use
  Company Number: US-ABBVIE-19K-163-2676223-00

PATIENT
  Sex: Female

DRUGS (1)
  1. HUMIRA [Suspect]
     Active Substance: ADALIMUMAB
     Indication: PSORIASIS
     Route: 058

REACTIONS (9)
  - Psoriasis [Unknown]
  - Renal failure [Unknown]
  - Anaemia [Unknown]
  - Blindness [Unknown]
  - Weight decreased [Unknown]
  - Blister [Unknown]
  - Cardiac failure congestive [Unknown]
  - Overweight [Unknown]
  - Visual impairment [Unknown]
